FAERS Safety Report 8013051-5 (Version None)
Quarter: 2011Q4

REPORT INFORMATION
  Report Type: 
  Country: None (occurrence: None)
  Receive Date: 20111229
  Receipt Date: 20111221
  Transmission Date: 20120403
  Serious: Yes (Other)
  Sender: FDA-Public Use
  Company Number: US-BAYER-2011-122784

PATIENT
  Sex: Male

DRUGS (1)
  1. CIPRO [Suspect]
     Dosage: 1 DF, ONCE
     Dates: start: 20111201, end: 20111201

REACTIONS (5)
  - TREMOR [None]
  - UNEVALUABLE EVENT [None]
  - MUSCLE TWITCHING [None]
  - DIZZINESS [None]
  - DISORIENTATION [None]
